FAERS Safety Report 15379943 (Version 1)
Quarter: 2018Q3

REPORT INFORMATION
  Report Type: Spontaneous
  Country: US (occurrence: US)
  Receive Date: 20180913
  Receipt Date: 20180913
  Transmission Date: 20181010
  Serious: No
  Sender: FDA-Public Use
  Company Number: US-ASTELLAS-2018US015690

PATIENT
  Age: 69 Year
  Sex: Male

DRUGS (1)
  1. XTANDI [Suspect]
     Active Substance: ENZALUTAMIDE
     Indication: PROSTATE CANCER
     Route: 048
     Dates: start: 20180202

REACTIONS (8)
  - Influenza like illness [Unknown]
  - Insomnia [Unknown]
  - Asthenia [Unknown]
  - Hot flush [Unknown]
  - Malaise [Unknown]
  - Hypertension [Unknown]
  - Headache [Unknown]
  - Fatigue [Unknown]

NARRATIVE: CASE EVENT DATE: 20180301
